FAERS Safety Report 25728107 (Version 1)
Quarter: 2025Q3

REPORT INFORMATION
  Report Type: Spontaneous
  Country: CN (occurrence: CN)
  Receive Date: 20250826
  Receipt Date: 20250826
  Transmission Date: 20251021
  Serious: Yes (Hospitalization, Other)
  Sender: AMGEN
  Company Number: CN-AMGEN-CHNSP2025166599

PATIENT
  Age: 50 Year
  Sex: Female

DRUGS (6)
  1. PROLIA [Suspect]
     Active Substance: DENOSUMAB
     Indication: Osteoporosis postmenopausal
     Dosage: 60 MILLIGRAM, Q6MO, FOR TWO YEARS
     Route: 040
     Dates: start: 2020
  2. LIDOCAINE HYDROCHLORIDE [Concomitant]
     Active Substance: LIDOCAINE HYDROCHLORIDE
  3. BETAMETHASONE [Concomitant]
     Active Substance: BETAMETHASONE
  4. SODIUM HYALURONATE [Concomitant]
     Active Substance: HYALURONATE SODIUM
  5. CALCIUM CARBONATE [Concomitant]
     Active Substance: CALCIUM CARBONATE
  6. VITAMIN D3 [Concomitant]
     Active Substance: CHOLECALCIFEROL
     Dosage: 500 MILLIGRAM, BID
     Dates: start: 2018

REACTIONS (9)
  - Xanthoma [Recovering/Resolving]
  - Hydronephrosis [Unknown]
  - Osteonecrosis [Unknown]
  - Renal impairment [Unknown]
  - Hyperlipidaemia [Unknown]
  - Metabolic disorder [Unknown]
  - Blood triglycerides increased [Unknown]
  - Benign bone neoplasm [Unknown]
  - Off label use [Unknown]
